FAERS Safety Report 15526061 (Version 1)
Quarter: 2018Q4

REPORT INFORMATION
  Report Type: Spontaneous
  Country: FR (occurrence: FR)
  Receive Date: 20181018
  Receipt Date: 20181018
  Transmission Date: 20190205
  Serious: Yes (Hospitalization)
  Sender: FDA-Public Use
  Company Number: FR-SA-2018SA287108

PATIENT
  Age: 49 Year
  Sex: Female
  Weight: 52 kg

DRUGS (6)
  1. TRASTUZUMAB. [Suspect]
     Active Substance: TRASTUZUMAB
     Indication: BREAST CANCER
     Dosage: 6 MG/KG, Q15D
     Route: 042
     Dates: start: 20130521, end: 20130521
  2. TAXOTERE [Suspect]
     Active Substance: DOCETAXEL
     Dosage: 6 COURSES IN ALL
     Dates: start: 20180903, end: 20180903
  3. CARBOPLATINE WINTHROP [Suspect]
     Active Substance: CARBOPLATIN
     Dosage: 578 MG, Q15D
     Route: 042
     Dates: start: 20130903, end: 20130903
  4. CARBOPLATINE WINTHROP [Suspect]
     Active Substance: CARBOPLATIN
     Indication: BREAST CANCER
     Dosage: 6 COURSES IN ALL
     Route: 042
     Dates: start: 20130521, end: 20130521
  5. TAXOTERE [Suspect]
     Active Substance: DOCETAXEL
     Indication: BREAST CANCER
     Dosage: 6 COURSES IN ALL
     Dates: start: 20130521, end: 20130521
  6. TRASTUZUMAB. [Suspect]
     Active Substance: TRASTUZUMAB
     Dosage: 6 MG/KG, Q15D
     Route: 042
     Dates: start: 20140516, end: 20140516

REACTIONS (1)
  - Acute myeloid leukaemia [Not Recovered/Not Resolved]

NARRATIVE: CASE EVENT DATE: 201802
